FAERS Safety Report 23983244 (Version 2)
Quarter: 2024Q3

REPORT INFORMATION
  Report Type: Spontaneous
  Country: US (occurrence: US)
  Receive Date: 20240617
  Receipt Date: 20240703
  Transmission Date: 20241017
  Serious: Yes (Hospitalization)
  Sender: EISAI
  Company Number: US-Eisai-EC-2024-167787

PATIENT
  Age: 79 Year
  Sex: Female

DRUGS (6)
  1. LEQEMBI [Suspect]
     Active Substance: LECANEMAB-IRMB
     Indication: Amnesia
     Dosage: DOSE UNKNOWN
     Route: 042
     Dates: start: 20240603, end: 20240603
  2. LEQEMBI [Suspect]
     Active Substance: LECANEMAB-IRMB
     Indication: Dementia Alzheimer^s type
  3. CELEXA [Concomitant]
     Active Substance: CITALOPRAM HYDROBROMIDE
     Indication: Depression
     Route: 065
     Dates: start: 2020
  4. CRESTOR [Concomitant]
     Active Substance: ROSUVASTATIN CALCIUM
     Indication: Blood cholesterol increased
     Route: 065
  5. ARICEPT [Concomitant]
     Active Substance: DONEPEZIL HYDROCHLORIDE
     Indication: Product used for unknown indication
     Route: 065
     Dates: start: 202404
  6. NAMENDA [Concomitant]
     Active Substance: MEMANTINE HYDROCHLORIDE
     Indication: Product used for unknown indication
     Route: 065

REACTIONS (12)
  - Intraventricular haemorrhage [Recovering/Resolving]
  - Amyloid related imaging abnormality-oedema/effusion [Unknown]
  - Fatigue [Unknown]
  - Lethargy [Unknown]
  - Decreased appetite [Unknown]
  - Weight decreased [Unknown]
  - Cognitive disorder [Unknown]
  - Memory impairment [Unknown]
  - General physical health deterioration [Unknown]
  - Fall [Recovered/Resolved]
  - Head injury [Recovered/Resolved]
  - Diarrhoea [Recovering/Resolving]

NARRATIVE: CASE EVENT DATE: 20240601
